FAERS Safety Report 4836963-X (Version None)
Quarter: 2005Q4

REPORT INFORMATION
  Report Type: 
  Country: None (occurrence: None)
  Receive Date: 20051121
  Receipt Date: 20051111
  Transmission Date: 20060501
  Serious: Yes (Death)
  Sender: FDA-Public Use
  Company Number: GXKR2005GB01644

PATIENT
  Age: 21 Year
  Sex: Female

DRUGS (5)
  1. MIRTAZAPINE [Suspect]
  2. ZOLPIDEM (NGX) (ZOLPIDEM) [Suspect]
  3. PROPOXYPHENE HCL [Suspect]
  4. PARACETAMOL (PARACETAMOL) [Suspect]
  5. VENLAFAXINE HCL [Suspect]

REACTIONS (3)
  - DRUG ABUSER [None]
  - DRUG LEVEL ABOVE THERAPEUTIC [None]
  - OVERDOSE [None]
